FAERS Safety Report 25466394 (Version 1)
Quarter: 2025Q2

REPORT INFORMATION
  Report Type: Spontaneous
  Country: CN (occurrence: CN)
  Receive Date: 20250623
  Receipt Date: 20250623
  Transmission Date: 20250716
  Serious: Yes (Hospitalization)
  Sender: ROCHE
  Company Number: CN-CHEPLA-2025007217

PATIENT
  Age: 73 Year
  Sex: Male
  Weight: 60 kg

DRUGS (3)
  1. CAPECITABINE [Suspect]
     Active Substance: CAPECITABINE
     Indication: Gastric cancer
     Route: 048
     Dates: start: 20250410, end: 20250410
  2. HERCEPTIN [Suspect]
     Active Substance: TRASTUZUMAB
     Indication: Gastric cancer
     Dosage: APPROVAL NO. GYZZ J20160033: Q21D: D1
     Route: 042
     Dates: start: 20250410, end: 20250410
  3. OXALIPLATIN [Suspect]
     Active Substance: OXALIPLATIN
     Indication: Gastric cancer
     Dosage: APPROVAL NO. GYZZ 200213060: Q21D
     Route: 042
     Dates: start: 20250410, end: 20250410

REACTIONS (4)
  - Renal failure [Recovering/Resolving]
  - Asthenia [Recovering/Resolving]
  - Decreased appetite [Unknown]
  - Oedema [Recovering/Resolving]

NARRATIVE: CASE EVENT DATE: 20250424
